FAERS Safety Report 7034559-5 (Version None)
Quarter: 2010Q4

REPORT INFORMATION
  Report Type: 
  Country: None (occurrence: None)
  Receive Date: 20101008
  Receipt Date: 20100929
  Transmission Date: 20110411
  Serious: Yes (Other)
  Sender: FDA-Public Use
  Company Number: BE-NOVOPROD-315911

PATIENT
  Sex: Male

DRUGS (3)
  1. VICTOZA [Suspect]
     Indication: PRODUCT USED FOR UNKNOWN INDICATION
     Dosage: 0.6 MG, QD
     Route: 058
     Dates: start: 20100601
  2. VICTOZA [Suspect]
     Dosage: 1.2 MG, QD
     Route: 058
  3. VICTOZA [Suspect]
     Dosage: 0.6 MG, BID

REACTIONS (4)
  - BLOOD AMYLASE INCREASED [None]
  - DIARRHOEA [None]
  - LIPASE INCREASED [None]
  - NAUSEA [None]
